FAERS Safety Report 25596281 (Version 1)
Quarter: 2025Q3

REPORT INFORMATION
  Report Type: Other
  Country: CA (occurrence: CA)
  Receive Date: 20250723
  Receipt Date: 20250723
  Transmission Date: 20251020
  Serious: Yes (Other)
  Sender: PFIZER
  Company Number: CA-PFIZER INC-202500148205

PATIENT
  Age: 42 Year
  Sex: Female

DRUGS (7)
  1. RITUXIMAB [Suspect]
     Active Substance: RITUXIMAB
     Indication: Immunosuppressant drug therapy
  2. CYCLOPHOSPHAMIDE [Concomitant]
     Active Substance: CYCLOPHOSPHAMIDE
     Dosage: 60 MG/KG, 1 EVERY 1 DAYS
  3. DASATINIB [Concomitant]
     Active Substance: DASATINIB
  4. FLUDARABINE [Concomitant]
     Active Substance: FLUDARABINE PHOSPHATE
     Dosage: 25 MG/M2, 1 EVERY 1 DAYS
  5. FLUDARABINE [Concomitant]
     Active Substance: FLUDARABINE PHOSPHATE
  6. MYCOPHENOLATE MOFETIL [Concomitant]
     Active Substance: MYCOPHENOLATE MOFETIL
     Indication: Prophylaxis
     Dosage: 15 MG/KG, 3X/DAY
  7. TACROLIMUS [Concomitant]
     Active Substance: TACROLIMUS

REACTIONS (2)
  - Graft versus host disease in gastrointestinal tract [Recovered/Resolved]
  - Off label use [Unknown]
